FAERS Safety Report 6479832-4 (Version None)
Quarter: 2009Q4

REPORT INFORMATION
  Report Type: 
  Country: None (occurrence: None)
  Receive Date: 20091202
  Receipt Date: 20091130
  Transmission Date: 20100525
  Serious: Yes (Other)
  Sender: FDA-Public Use
  Company Number: 2009029300

PATIENT
  Sex: Female

DRUGS (1)
  1. MODAFINIL [Suspect]
     Indication: NARCOLEPSY
     Dosage: (100 MG), ORAL
     Route: 048

REACTIONS (1)
  - HYPERTENSIVE CRISIS [None]
